FAERS Safety Report 25374533 (Version 1)
Quarter: 2025Q2

REPORT INFORMATION
  Report Type: Spontaneous
  Country: US (occurrence: None)
  Receive Date: 20250528
  Receipt Date: 20250528
  Transmission Date: 20250716
  Serious: Yes (Hospitalization)
  Sender: FDA-CTU
  Company Number: None

PATIENT
  Age: 78 Year
  Sex: Male
  Weight: 91 kg

DRUGS (2)
  1. PEMBROLIZUMAB [Suspect]
     Active Substance: PEMBROLIZUMAB
     Indication: Transitional cell carcinoma
     Route: 042
     Dates: start: 20250402
  2. ENFORTUMAB [Concomitant]
     Active Substance: ENFORTUMAB
     Dates: start: 20250402

REACTIONS (2)
  - Diabetic ketoacidosis [None]
  - Acute kidney injury [None]

NARRATIVE: CASE EVENT DATE: 20250417
